FAERS Safety Report 11931138 (Version 1)
Quarter: 2016Q1

REPORT INFORMATION
  Report Type: Spontaneous
  Country: US (occurrence: US)
  Receive Date: 20160120
  Receipt Date: 20160120
  Transmission Date: 20160526
  Serious: No
  Sender: FDA-Public Use
  Company Number: US-INCYTE CORPORATION-2015IN004580

PATIENT
  Sex: Female

DRUGS (3)
  1. JAKAFI [Suspect]
     Active Substance: RUXOLITINIB
     Dosage: 10 MG, BID
     Route: 048
     Dates: start: 20150401
  2. NEXIUM [Concomitant]
     Active Substance: ESOMEPRAZOLE MAGNESIUM
  3. IRON [Concomitant]
     Active Substance: IRON

REACTIONS (7)
  - Balance disorder [Unknown]
  - Asthenia [Unknown]
  - Laceration [Unknown]
  - White blood cell count decreased [Unknown]
  - Cardiac discomfort [Unknown]
  - Fatigue [Unknown]
  - Red blood cell count decreased [Unknown]
